FAERS Safety Report 23298526 (Version 1)
Quarter: 2023Q4

REPORT INFORMATION
  Report Type: Spontaneous
  Country: RU (occurrence: RU)
  Receive Date: 20231214
  Receipt Date: 20231214
  Transmission Date: 20240109
  Serious: Yes (Other)
  Sender: FDA-Public Use
  Company Number: RU-SA-SAC20231212001352

PATIENT
  Age: 29 Year
  Sex: Male

DRUGS (2)
  1. APIDRA SOLOSTAR [Suspect]
     Active Substance: INSULIN GLULISINE
     Indication: Type 1 diabetes mellitus
     Dosage: UNK UNK, QD; DOSAGE :8-10 IU DURATION OF DRUG ADMINISTRATION: 1 DAYS
     Route: 058
     Dates: start: 20231003, end: 20231003
  2. INSULIN ASPART [Suspect]
     Active Substance: INSULIN ASPART
     Indication: Type 1 diabetes mellitus
     Dosage: UNK; DOSAGE :8-10 IU DURATION OF DRUG ADMINISTRATION: 25 DAYS
     Dates: start: 20231107, end: 20231201

REACTIONS (10)
  - General physical condition abnormal [Recovered/Resolved]
  - Ketoacidosis [Recovered/Resolved]
  - Urine ketone body present [Recovered/Resolved]
  - Injection site pruritus [Recovered/Resolved]
  - Injection site swelling [Recovered/Resolved]
  - Injection site erythema [Recovered/Resolved]
  - Hyperglycaemia [Recovered/Resolved]
  - Dizziness [Recovered/Resolved]
  - Nausea [Recovered/Resolved]
  - Vision blurred [Recovered/Resolved]

NARRATIVE: CASE EVENT DATE: 20230101
